FAERS Safety Report 13308839 (Version 1)
Quarter: 2017Q1

REPORT INFORMATION
  Report Type: Spontaneous
  Country: US (occurrence: US)
  Receive Date: 20170308
  Receipt Date: 20170308
  Transmission Date: 20170428
  Serious: Yes (Other)
  Sender: FDA-Public Use
  Company Number: None

PATIENT
  Age: 23 Year
  Sex: Female
  Weight: 115.2 kg

DRUGS (2)
  1. NYSTATIN-TRIAMCINOLONE OINTMENT [Suspect]
     Active Substance: NYSTATIN\TRIAMCINOLONE
     Indication: FUNGAL SKIN INFECTION
     Dosage: 1 CREAM TWICE A DAY TOPICAL
     Route: 061
     Dates: start: 20170222, end: 20170308
  2. IBUPROFEN. [Concomitant]
     Active Substance: IBUPROFEN

REACTIONS (3)
  - Pruritus [None]
  - Burning sensation [None]
  - Skin hypopigmentation [None]

NARRATIVE: CASE EVENT DATE: 20170225
